FAERS Safety Report 17502363 (Version 1)
Quarter: 2020Q1

REPORT INFORMATION
  Report Type: Spontaneous
  Country: US (occurrence: US)
  Receive Date: 20200305
  Receipt Date: 20200305
  Transmission Date: 20200409
  Serious: Yes (Death, Hospitalization)
  Sender: FDA-Public Use
  Company Number: US-TEVA-2020-US-1193393

PATIENT
  Age: 36 Year
  Sex: Female

DRUGS (7)
  1. DOPAMINE [Suspect]
     Active Substance: DOPAMINE HYDROCHLORIDE
     Indication: BRAIN INJURY
     Route: 065
  2. FAT EMULSION NOS [Suspect]
     Active Substance: EGG PHOSPHOLIPIDS\SAFFLOWER OIL\SOYBEAN OIL
     Indication: BRAIN INJURY
     Route: 042
  3. NALOXONE [Suspect]
     Active Substance: NALOXONE
     Indication: BRAIN INJURY
     Route: 065
  4. EPINEPHRINE. [Suspect]
     Active Substance: EPINEPHRINE
     Indication: BRAIN INJURY
     Route: 065
  5. PENTOBARBITAL. [Suspect]
     Active Substance: PENTOBARBITAL
     Indication: COMPLETED SUICIDE
     Dosage: SHE ADMINISTERED A BOTTLE OF PENTOBARBITAL WITH A SYRINGE
     Route: 065
  6. NOREPINEPHRINE. [Suspect]
     Active Substance: NOREPINEPHRINE
     Indication: BRAIN INJURY
     Route: 065
  7. SODIUM BICARBONATE. [Suspect]
     Active Substance: SODIUM BICARBONATE
     Indication: BRAIN INJURY
     Dosage: DRIPS
     Route: 065

REACTIONS (7)
  - Cardiac arrest [Fatal]
  - Cardiomegaly [Fatal]
  - Drug ineffective [Unknown]
  - Brain stem ischaemia [Fatal]
  - Toxicity to various agents [Fatal]
  - Completed suicide [Fatal]
  - Brain injury [Fatal]
